FAERS Safety Report 16018749 (Version 1)
Quarter: 2019Q1

REPORT INFORMATION
  Report Type: Spontaneous
  Country: US (occurrence: US)
  Receive Date: 20190228
  Receipt Date: 20190228
  Transmission Date: 20190418
  Serious: Yes (Death, Hospitalization)
  Sender: FDA-Public Use
  Company Number: US-BAYER-2019-041885

PATIENT
  Sex: Male

DRUGS (4)
  1. VITRAKVI [Suspect]
     Active Substance: LAROTRECTINIB
     Indication: NEUROFIBROSARCOMA
     Dosage: 100 MG, BID
     Route: 048
     Dates: start: 20190109, end: 20190123
  2. ESSENTIAL OILS NOS [Concomitant]
  3. ASCORBIC ACID. [Concomitant]
     Active Substance: ASCORBIC ACID
  4. OXYGEN. [Concomitant]
     Active Substance: OXYGEN

REACTIONS (3)
  - Off label use [None]
  - Pain [None]
  - Death [Fatal]

NARRATIVE: CASE EVENT DATE: 201901
